FAERS Safety Report 20837101 (Version 1)
Quarter: 2022Q2

REPORT INFORMATION
  Report Type: Spontaneous
  Country: US (occurrence: US)
  Receive Date: 20220517
  Receipt Date: 20220517
  Transmission Date: 20220721
  Serious: Yes (Death, Other)
  Sender: FDA-Public Use
  Company Number: US-BRISTOL-MYERS SQUIBB COMPANY-2022-032891

PATIENT
  Age: 74 Year
  Sex: Female
  Weight: 55.34 kg

DRUGS (2)
  1. THALOMID [Suspect]
     Active Substance: THALIDOMIDE
     Indication: Plasma cell myeloma
     Dosage: DAILY, IN THE EVENING FOR 28 DAYS ON AND 7 DAYS OFF
     Route: 048
     Dates: start: 202201
  2. OMEPRAZOLE [Concomitant]
     Active Substance: OMEPRAZOLE
     Dosage: DAILY

REACTIONS (1)
  - Malignant neoplasm progression [Fatal]
